FAERS Safety Report 13477931 (Version 2)
Quarter: 2017Q3

REPORT INFORMATION
  Report Type: Spontaneous
  Country: US (occurrence: US)
  Receive Date: 20170424
  Receipt Date: 20170728
  Transmission Date: 20171127
  Serious: No
  Sender: FDA-Public Use
  Company Number: US-AMGEN-USASP2017027518

PATIENT
  Age: 55 Year
  Sex: Female

DRUGS (15)
  1. REPATHA [Suspect]
     Active Substance: EVOLOCUMAB
     Indication: BLOOD CHOLESTEROL INCREASED
     Dosage: 140 MG, Q2WK
     Route: 065
  2. LYRICA [Concomitant]
     Active Substance: PREGABALIN
  3. METFORMIN [Concomitant]
     Active Substance: METFORMIN HYDROCHLORIDE
  4. OXCARBAZEPINE. [Concomitant]
     Active Substance: OXCARBAZEPINE
  5. BYDUREON [Concomitant]
     Active Substance: EXENATIDE
     Indication: DIABETES MELLITUS
  6. CELEBREX [Concomitant]
     Active Substance: CELECOXIB
  7. ASPIRIN. [Concomitant]
     Active Substance: ASPIRIN
     Dosage: 81 MG, UNK
  8. ATENOLOL. [Concomitant]
     Active Substance: ATENOLOL
  9. NOVOLOG [Concomitant]
     Active Substance: INSULIN ASPART
  10. AMANTADINE. [Concomitant]
     Active Substance: AMANTADINE HYDROCHLORIDE
  11. KLONOPIN [Concomitant]
     Active Substance: CLONAZEPAM
  12. LISINOPRIL. [Concomitant]
     Active Substance: LISINOPRIL
  13. ZOLOFT [Concomitant]
     Active Substance: SERTRALINE HYDROCHLORIDE
  14. PLAVIX [Concomitant]
     Active Substance: CLOPIDOGREL BISULFATE
  15. GEODON [Concomitant]
     Active Substance: ZIPRASIDONE HYDROCHLORIDE\ZIPRASIDONE MESYLATE

REACTIONS (1)
  - Drug dose omission [Unknown]
